FAERS Safety Report 21883771 (Version 1)
Quarter: 2023Q1

REPORT INFORMATION
  Report Type: Spontaneous
  Country: US (occurrence: None)
  Receive Date: 20230118
  Receipt Date: 20230118
  Transmission Date: 20230418
  Serious: Yes (Other)
  Sender: FDA-Public Use
  Company Number: None

PATIENT
  Age: 39 Year
  Sex: Female

DRUGS (1)
  1. HUMIRA [Suspect]
     Active Substance: ADALIMUMAB
     Dosage: 40MG/0.4ML QWEEKLY SC?
     Route: 058
     Dates: start: 202108

REACTIONS (2)
  - Abdominal pain [None]
  - Condition aggravated [None]

NARRATIVE: CASE EVENT DATE: 20230117
